FAERS Safety Report 13410044 (Version 1)
Quarter: 2017Q2

REPORT INFORMATION
  Report Type: Spontaneous
  Country: US (occurrence: US)
  Receive Date: 20170406
  Receipt Date: 20170406
  Transmission Date: 20170830
  Serious: No
  Sender: FDA-Public Use
  Company Number: US-BIOGEN-2017BI00380377

PATIENT
  Sex: Female

DRUGS (3)
  1. TYSABRI [Suspect]
     Active Substance: NATALIZUMAB
     Dosage: INFUSED OVER ONE HOUR
     Route: 065
     Dates: start: 20120120, end: 20120316
  2. TYSABRI [Suspect]
     Active Substance: NATALIZUMAB
     Indication: MULTIPLE SCLEROSIS
     Dosage: INFUSED OVER ONE HOUR
     Route: 065
     Dates: start: 20080605, end: 20100208
  3. TYSABRI [Suspect]
     Active Substance: NATALIZUMAB
     Dosage: INFUSED OVER ONE HOUR
     Route: 065
     Dates: start: 20130522, end: 20170202

REACTIONS (5)
  - Abdominal discomfort [Unknown]
  - Malaise [Unknown]
  - Hypophagia [Unknown]
  - Memory impairment [Unknown]
  - Feeling abnormal [Unknown]
